FAERS Safety Report 9276371 (Version 2)
Quarter: 2013Q2

REPORT INFORMATION
  Report Type: Report from Study
  Country: US (occurrence: US)
  Receive Date: 20130507
  Receipt Date: 20130625
  Transmission Date: 20140414
  Serious: Yes (Hospitalization, Other)
  Sender: FDA-Public Use
  Company Number: US-PURDUE-USA-2013-0101717

PATIENT
  Age: 68 Year
  Sex: Female

DRUGS (1)
  1. OXYCONTIN (NDA 22-272) [Suspect]
     Indication: PAIN
     Dosage: 80 MG, Q12H

REACTIONS (6)
  - Weight decreased [Unknown]
  - Dehydration [Unknown]
  - Influenza [Unknown]
  - Drug ineffective [Unknown]
  - Gait disturbance [Unknown]
  - Vomiting [Unknown]
